FAERS Safety Report 16963337 (Version 1)
Quarter: 2019Q4

REPORT INFORMATION
  Report Type: Spontaneous
  Country: US (occurrence: US)
  Receive Date: 20191025
  Receipt Date: 20191025
  Transmission Date: 20200122
  Serious: Yes (Other)
  Sender: FDA-Public Use
  Company Number: US-FRESENIUS KABI-FK201911682

PATIENT
  Age: 59 Year
  Sex: Female

DRUGS (2)
  1. PROPOFOL (MANUFACTURER UNKNOWN) [Suspect]
     Active Substance: PROPOFOL
     Indication: SEDATIVE THERAPY
     Dosage: UNKNOWN
     Route: 042
     Dates: start: 20180504, end: 20180504
  2. PROPOFOL (MANUFACTURER UNKNOWN) [Suspect]
     Active Substance: PROPOFOL
     Dosage: UNKNOWN
     Route: 042
     Dates: start: 20181031, end: 20181031

REACTIONS (18)
  - Propofol infusion syndrome [Unknown]
  - Injection site bruising [Unknown]
  - Vertigo [Unknown]
  - Injection site mass [Unknown]
  - Headache [Not Recovered/Not Resolved]
  - Hallucination [Unknown]
  - Paraesthesia [Unknown]
  - Dysphagia [Unknown]
  - Nausea [Unknown]
  - Injection site pain [Unknown]
  - Pain in extremity [Unknown]
  - Amnesia [Not Recovered/Not Resolved]
  - Vomiting [Unknown]
  - Asthenia [Not Recovered/Not Resolved]
  - Palpitations [Not Recovered/Not Resolved]
  - Chills [Unknown]
  - Chest pain [Not Recovered/Not Resolved]
  - Extrasystoles [Not Recovered/Not Resolved]
